FAERS Safety Report 8316489-1 (Version None)
Quarter: 2012Q2

REPORT INFORMATION
  Report Type: 
  Country: None (occurrence: None)
  Receive Date: 20120427
  Receipt Date: 20120417
  Transmission Date: 20120825
  Serious: Yes (Other)
  Sender: FDA-Public Use
  Company Number: PHHY2012JP027731

PATIENT
  Age: 80 Year
  Sex: Female

DRUGS (6)
  1. EXELON [Suspect]
     Indication: DEMENTIA ALZHEIMER'S TYPE
     Dosage: 4.5 MG, DAILY
     Route: 062
     Dates: start: 20120206, end: 20120220
  2. DUOACTIVE [Concomitant]
  3. EXELON [Suspect]
     Dosage: 13.5 MG, DAILY
     Route: 062
     Dates: start: 20120320, end: 20120323
  4. GALANTAMINE HYDROBROMIDE [Concomitant]
     Indication: DEMENTIA ALZHEIMER'S TYPE
     Route: 048
  5. GARENOXACIN MESYLATE [Concomitant]
     Dosage: 400 MG, UNK
     Route: 048
     Dates: start: 20020120, end: 20120124
  6. EXELON [Suspect]
     Dosage: 9 MG, DAILY
     Route: 062
     Dates: start: 20120221, end: 20120319

REACTIONS (1)
  - LIVER DISORDER [None]
